FAERS Safety Report 7470885-3 (Version None)
Quarter: 2011Q2

REPORT INFORMATION
  Report Type: 
  Country: None (occurrence: None)
  Receive Date: 20110510
  Receipt Date: 20110505
  Transmission Date: 20111010
  Serious: Yes (Death, Hospitalization, Other)
  Sender: FDA-Public Use
  Company Number: SE-ELI_LILLY_AND_COMPANY-SE201105001699

PATIENT
  Age: 67 Year
  Sex: Male

DRUGS (8)
  1. CIPRALEX [Concomitant]
     Dosage: UNK, UNKNOWN
     Route: 065
  2. METOPROLOL SUCCINATE [Concomitant]
     Dosage: UNK, UNKNOWN
     Route: 065
  3. EFFIENT [Suspect]
     Dosage: 10 MG, QD
     Route: 048
     Dates: start: 20110401
  4. RAMIPRIL [Concomitant]
     Dosage: UNK, UNKNOWN
     Route: 065
  5. IMDUR [Concomitant]
     Dosage: UNK, UNKNOWN
     Route: 065
  6. ZOPICLONE [Concomitant]
     Dosage: UNK, UNKNOWN
     Route: 065
  7. AMLODIPINE BESYLATE [Concomitant]
     Dosage: UNK, UNKNOWN
     Route: 065
  8. CRESTOR [Concomitant]
     Dosage: UNK, UNKNOWN
     Route: 065

REACTIONS (7)
  - MOUTH HAEMORRHAGE [None]
  - CEREBRAL HAEMORRHAGE [None]
  - BRAIN COMPRESSION [None]
  - GENERAL PHYSICAL HEALTH DETERIORATION [None]
  - DEATH [None]
  - APHASIA [None]
  - HEMIPARESIS [None]
